FAERS Safety Report 13288470 (Version 4)
Quarter: 2018Q1

REPORT INFORMATION
  Report Type: Spontaneous
  Country: US (occurrence: US)
  Receive Date: 20170302
  Receipt Date: 20180111
  Transmission Date: 20180508
  Serious: Yes (Hospitalization)
  Sender: FDA-Public Use
  Company Number: US-ACTELION-A-US2017-150396

PATIENT
  Age: 74 Year
  Sex: Female

DRUGS (3)
  1. TRACLEER [Suspect]
     Active Substance: BOSENTAN
     Indication: PULMONARY ARTERIAL HYPERTENSION
     Dosage: 125 MG, BID
     Route: 048
  2. XARELTO [Concomitant]
     Active Substance: RIVAROXABAN
  3. AMLODIPINE [Concomitant]
     Active Substance: AMLODIPINE BESYLATE

REACTIONS (6)
  - Trigeminal neuralgia [Unknown]
  - Blood uric acid increased [Recovering/Resolving]
  - Chondrocalcinosis pyrophosphate [Recovering/Resolving]
  - Coronary artery disease [Unknown]
  - Arthralgia [Recovering/Resolving]
  - Joint swelling [Recovering/Resolving]
